FAERS Safety Report 25809498 (Version 1)
Quarter: 2025Q3

REPORT INFORMATION
  Report Type: Spontaneous
  Country: US (occurrence: US)
  Receive Date: 20250916
  Receipt Date: 20250916
  Transmission Date: 20251021
  Serious: No
  Sender: SANOFI AVENTIS
  Company Number: US-SA-2025SA275046

PATIENT
  Age: 16 Year
  Sex: Female

DRUGS (9)
  1. REZUROCK [Suspect]
     Active Substance: BELUMOSUDIL
     Indication: Chronic graft versus host disease
     Dosage: 200 MG, QD
     Route: 048
  2. AZITHROMYCIN [Concomitant]
     Active Substance: AZITHROMYCIN
  3. ZOLOFT [Concomitant]
     Active Substance: SERTRALINE HYDROCHLORIDE
  4. BACTRIM [Concomitant]
     Active Substance: SULFAMETHOXAZOLE\TRIMETHOPRIM
  5. PREDNISONE [Concomitant]
     Active Substance: PREDNISONE
  6. GABAPENTIN [Concomitant]
     Active Substance: GABAPENTIN
  7. MELATONIN [Concomitant]
     Active Substance: MELATONIN
  8. FLUVOXAMINE [Concomitant]
     Active Substance: FLUVOXAMINE
  9. SYNTHROID [Concomitant]
     Active Substance: LEVOTHYROXINE SODIUM

REACTIONS (1)
  - Joint stiffness [Recovering/Resolving]
